FAERS Safety Report 5249642-4 (Version None)
Quarter: 2007Q1

REPORT INFORMATION
  Report Type: 
  Country: None (occurrence: None)
  Receive Date: 20070228
  Receipt Date: 20060526
  Transmission Date: 20070707
  Serious: No
  Sender: FDA-Public Use
  Company Number: US-GLAXOSMITHKLINE-A0607504A

PATIENT
  Age: 47 Year
  Sex: Female

DRUGS (1)
  1. IMITREX [Suspect]
     Indication: MIGRAINE
     Route: 030

REACTIONS (2)
  - BLOOD CHOLESTEROL INCREASED [None]
  - LOW DENSITY LIPOPROTEIN INCREASED [None]
